FAERS Safety Report 8009414-4 (Version None)
Quarter: 2011Q4

REPORT INFORMATION
  Report Type: 
  Country: None (occurrence: None)
  Receive Date: 20111227
  Receipt Date: 20111223
  Transmission Date: 20120403
  Serious: Yes (Hospitalization)
  Sender: FDA-Public Use
  Company Number: US-VERTEX PHARMACEUTICALS INC.-AE-2011-004715

PATIENT
  Sex: Male

DRUGS (9)
  1. RIBAVIRIN [Concomitant]
     Indication: HEPATITIS C
     Route: 048
     Dates: start: 20110930, end: 20111208
  2. INCIVEK [Suspect]
     Indication: HEPATITIS C
     Route: 048
     Dates: start: 20110930, end: 20111206
  3. AMBIEN [Concomitant]
  4. BENADRYL [Concomitant]
  5. VISTARIL [Concomitant]
  6. CLARITIN [Concomitant]
  7. TRIAMCINOLONE OINTMENT [Concomitant]
  8. INTERFERON [Concomitant]
     Indication: HEPATITIS C
     Route: 058
     Dates: start: 20110930, end: 20111208
  9. ZOFRAN [Concomitant]

REACTIONS (5)
  - LOCALISED OEDEMA [None]
  - RASH [None]
  - FACE OEDEMA [None]
  - PRURITUS [None]
  - LUNG INFILTRATION [None]
